FAERS Safety Report 17211539 (Version 2)
Quarter: 2021Q1

REPORT INFORMATION
  Report Type: Report from Study
  Country: US (occurrence: US)
  Receive Date: 20191229
  Receipt Date: 20210119
  Transmission Date: 20210419
  Serious: No
  Sender: FDA-Public Use
  Company Number: US-009507513-1912USA008069

PATIENT
  Age: 62 Year
  Sex: Female

DRUGS (1)
  1. MAXALT?MLT [Suspect]
     Active Substance: RIZATRIPTAN BENZOATE
     Indication: MIGRAINE
     Dosage: 1 PILL EVERY 2 HOURS AS NEEDED (PRN)
     Route: 048
     Dates: end: 20201222

REACTIONS (9)
  - Migraine [Not Recovered/Not Resolved]
  - Sensory disturbance [Not Recovered/Not Resolved]
  - Product dose omission issue [Unknown]
  - Movement disorder [Not Recovered/Not Resolved]
  - Product dose omission issue [Unknown]
  - Nausea [Unknown]
  - Dysphagia [Unknown]
  - Vomiting [Unknown]
  - Migraine [Not Recovered/Not Resolved]

NARRATIVE: CASE EVENT DATE: 201911
